FAERS Safety Report 8333470-7 (Version None)
Quarter: 2012Q1

REPORT INFORMATION
  Report Type: 
  Country: None (occurrence: None)
  Receive Date: 20120329
  Receipt Date: 20080822
  Transmission Date: 20120608
  Serious: Yes (Other)
  Sender: FDA-Public Use
  Company Number: PHEH2008US07430

PATIENT
  Age: 97 Year
  Sex: Female

DRUGS (3)
  1. EXELON [Suspect]
     Dosage: 1.5 MG, BID 3 MG, BID 1.5 MG, TID
     Dates: end: 20080818
  2. EXELON [Suspect]
     Dosage: 1.5 MG, BID 3 MG, BID 1.5 MG, TID
     Dates: start: 20080821
  3. EXELON [Suspect]
     Dosage: 1.5 MG, BID 3 MG, BID 1.5 MG, TID
     Dates: start: 20080819, end: 20080820

REACTIONS (3)
  - DISORIENTATION [None]
  - EPISTAXIS [None]
  - AGITATION [None]
